FAERS Safety Report 18098481 (Version 4)
Quarter: 2021Q3

REPORT INFORMATION
  Report Type: Spontaneous
  Country: US (occurrence: US)
  Receive Date: 20200731
  Receipt Date: 20210812
  Transmission Date: 20211014
  Serious: Yes (Disabling, Other)
  Sender: FDA-Public Use
  Company Number: US-EDGEWELL PERSONAL CARE, LLC-2087990

PATIENT
  Age: 19 Year
  Sex: Male

DRUGS (4)
  1. BANANA BOAT ULTRAMIST SPORT PERFORMANCE SPF 50 [Suspect]
     Active Substance: AVOBENZONE\HOMOSALATE\OCTINOXATE\OCTISALATE\OCTOCRYLENE\OXYBENZONE
     Indication: PROPHYLAXIS AGAINST SOLAR RADIATION
     Route: 061
     Dates: start: 20200715, end: 20200715
  2. DAYTRANA [Concomitant]
     Active Substance: METHYLPHENIDATE
     Dates: start: 2019
  3. RETIN?A [Concomitant]
     Active Substance: TRETINOIN
  4. CLINDAGEL [Concomitant]
     Active Substance: CLINDAMYCIN PHOSPHATE

REACTIONS (13)
  - Insomnia [Recovering/Resolving]
  - Chills [Recovering/Resolving]
  - Dehydration [Recovering/Resolving]
  - Nausea [Recovering/Resolving]
  - Skin exfoliation [Recovering/Resolving]
  - Dizziness [Recovering/Resolving]
  - Sunburn [Recovering/Resolving]
  - Swelling [Recovering/Resolving]
  - Skin erosion [Recovering/Resolving]
  - Impaired work ability [Recovering/Resolving]
  - Pyrexia [Recovering/Resolving]
  - Pain [Recovering/Resolving]
  - Lethargy [Recovering/Resolving]

NARRATIVE: CASE EVENT DATE: 20200715
